FAERS Safety Report 4704546-8 (Version None)
Quarter: 2005Q2

REPORT INFORMATION
  Report Type: 
  Country: None (occurrence: None)
  Receive Date: 20050629
  Receipt Date: 20050615
  Transmission Date: 20051028
  Serious: Yes (Hospitalization)
  Sender: FDA-Public Use
  Company Number: SUS1-2005-00507

PATIENT
  Age: 19 Year
  Sex: Female

DRUGS (2)
  1. PENTASA [Suspect]
     Indication: COLITIS ULCERATIVE
     Dates: end: 20050508
  2. SERETIDE DISKUS (FLUTICASONE PROPIONATE, SALMETEREOL XINAFOATE) [Concomitant]

REACTIONS (10)
  - ANTINEUTROPHIL CYTOPLASMIC ANTIBODY POSITIVE [None]
  - ANTINUCLEAR ANTIBODY POSITIVE [None]
  - ASTHMA [None]
  - CD4/CD8 RATIO DECREASED [None]
  - CONDITION AGGRAVATED [None]
  - EOSINOPHILIA [None]
  - INTERSTITIAL LUNG DISEASE [None]
  - LEUKOCYTOSIS [None]
  - PULMONARY FIBROSIS [None]
  - RED BLOOD CELL SEDIMENTATION RATE INCREASED [None]
